FAERS Safety Report 22324374 (Version 1)
Quarter: 2023Q2

REPORT INFORMATION
  Report Type: Spontaneous
  Country: GB (occurrence: None)
  Receive Date: 20230516
  Receipt Date: 20230516
  Transmission Date: 20230722
  Serious: Yes (Other)
  Sender: FDA-Public Use
  Company Number: 2023A113052

PATIENT
  Sex: Male

DRUGS (3)
  1. SEROQUEL [Suspect]
     Active Substance: QUETIAPINE FUMARATE
     Indication: Product used for unknown indication
  2. CODEINE [Concomitant]
     Active Substance: CODEINE
  3. AMPHETAMINE [Concomitant]
     Active Substance: AMPHETAMINE

REACTIONS (3)
  - Abscess [Unknown]
  - Dysphagia [Unknown]
  - Contraindicated product administered [Unknown]
